FAERS Safety Report 17055593 (Version 1)
Quarter: 2019Q4

REPORT INFORMATION
  Report Type: Other
  Country: US (occurrence: US)
  Receive Date: 20191120
  Receipt Date: 20191120
  Transmission Date: 20200122
  Serious: No
  Sender: FDA-Public Use
  Company Number: US-LEADIANT BIOSCIENCES INC-2019STPI000148

PATIENT

DRUGS (7)
  1. CYSTARAN [Suspect]
     Active Substance: CYSTEAMINE HYDROCHLORIDE
     Indication: CYSTINURIA
     Dosage: UNK, QD, EVERY WAKING HOUR
     Route: 047
     Dates: start: 20181025
  2. IMURAN [Concomitant]
     Active Substance: AZATHIOPRINE
     Dosage: 50 MILLIGRAM
     Route: 048
     Dates: start: 20180913
  3. LEVOTHYROXIN [Concomitant]
     Active Substance: LEVOTHYROXINE
     Dosage: 75 MICROGRAM
     Route: 048
     Dates: start: 20180913
  4. PROCYSBI [Concomitant]
     Active Substance: CYSTEAMINE BITARTRATE
     Dosage: 75 MILLIGRAM
     Route: 048
     Dates: start: 20181024
  5. BUSPIRONE [Concomitant]
     Active Substance: BUSPIRONE HYDROCHLORIDE
     Dosage: 5 MILLIGRAM
     Route: 048
     Dates: start: 20180202
  6. AMLODIPINE [Concomitant]
     Active Substance: AMLODIPINE BESYLATE
     Dosage: 2.5 MILLIGRAM
     Route: 048
     Dates: start: 20180813
  7. PREDNISONE. [Concomitant]
     Active Substance: PREDNISONE
     Dosage: 5 MILLIGRAM
     Route: 048
     Dates: start: 20180803

REACTIONS (1)
  - Eye irritation [Not Recovered/Not Resolved]
